FAERS Safety Report 18801068 (Version 4)
Quarter: 2021Q1

REPORT INFORMATION
  Report Type: Report from Study
  Country: FR (occurrence: FR)
  Receive Date: 20210128
  Receipt Date: 20210309
  Transmission Date: 20210419
  Serious: Yes (Death, Hospitalization)
  Sender: FDA-Public Use
  Company Number: FR-CELGENEUS-FRA-20210106733

PATIENT
  Age: 60 Year
  Sex: Female
  Weight: 75 kg

DRUGS (3)
  1. IDHIFA [Suspect]
     Active Substance: ENASIDENIB MESYLATE
     Indication: ACUTE MYELOID LEUKAEMIA
     Dosage: 100 MILLIGRAM
     Route: 048
     Dates: start: 20191129, end: 201912
  2. IDHIFA [Suspect]
     Active Substance: ENASIDENIB MESYLATE
     Dosage: 100 MILLIGRAM
     Route: 048
     Dates: start: 20201201
  3. OXYNORM [Concomitant]
     Active Substance: OXYCODONE HYDROCHLORIDE
     Indication: PRODUCT USED FOR UNKNOWN INDICATION
     Route: 065
     Dates: start: 20200912

REACTIONS (1)
  - Septic shock [Fatal]

NARRATIVE: CASE EVENT DATE: 20210106
